FAERS Safety Report 16336448 (Version 1)
Quarter: 2019Q2

REPORT INFORMATION
  Report Type: Spontaneous
  Country: US (occurrence: US)
  Receive Date: 20190415
  Receipt Date: 20190415
  Transmission Date: 20190711
  Serious: Yes (Hospitalization)
  Sender: FDA-Public Use
  Company Number: None

PATIENT
  Age: 30 Year
  Sex: Male

DRUGS (1)
  1. GLATIRAMER 20MG [Suspect]
     Active Substance: GLATIRAMER
     Indication: MULTIPLE SCLEROSIS
     Route: 042
     Dates: start: 20190315, end: 20190410

REACTIONS (5)
  - Headache [None]
  - Chills [None]
  - Pyrexia [None]
  - Myalgia [None]
  - Tremor [None]

NARRATIVE: CASE EVENT DATE: 20190410
